FAERS Safety Report 6870848-2 (Version None)
Quarter: 2010Q3

REPORT INFORMATION
  Report Type: 
  Country: None (occurrence: None)
  Receive Date: 20100721
  Receipt Date: 20100712
  Transmission Date: 20110219
  Serious: Yes (Hospitalization, Disabling)
  Sender: FDA-Public Use
  Company Number: RB-13131-2010

PATIENT
  Age: 19 Year
  Sex: Male

DRUGS (3)
  1. BUPRENORPHINE HYDROCHLORIDE AND NALOXONE HYDROGHLORIDE [Suspect]
     Indication: DRUG DEPENDENCE
     Dates: start: 20090610, end: 20100502
  2. AMITRIPTYLINE HYDROCHLORIDE [Concomitant]
  3. IBUPROFEN [Concomitant]

REACTIONS (5)
  - ABASIA [None]
  - ARTHRALGIA [None]
  - INTERVERTEBRAL DISC PROTRUSION [None]
  - PAIN IN EXTREMITY [None]
  - PYREXIA [None]
